FAERS Safety Report 4325502-8 (Version None)
Quarter: 2004Q1

REPORT INFORMATION
  Report Type: 
  Country: None (occurrence: None)
  Receive Date: 20040324
  Receipt Date: 20040308
  Transmission Date: 20041129
  Serious: Yes (Hospitalization)
  Sender: FDA-Public Use
  Company Number: HQWYE257825NOV03

PATIENT
  Age: 48 Year
  Sex: Female
  Weight: 63 kg

DRUGS (12)
  1. RAPAMUNE [Suspect]
     Indication: PROPHYLAXIS AGAINST TRANSPLANT REJECTION
     Dosage: SEE IMAGE
     Route: 048
     Dates: start: 20031030, end: 20031030
  2. RAPAMUNE [Suspect]
     Indication: PROPHYLAXIS AGAINST TRANSPLANT REJECTION
     Dosage: SEE IMAGE
     Route: 048
     Dates: start: 20031031, end: 20031104
  3. RAPAMUNE [Suspect]
     Indication: PROPHYLAXIS AGAINST TRANSPLANT REJECTION
     Dosage: SEE IMAGE
     Route: 048
     Dates: start: 20031106
  4. HEPARIN [Suspect]
     Dosage: SUBCUTANEOUS
     Route: 058
  5. NEORAL [Suspect]
     Indication: PROPHYLAXIS AGAINST TRANSPLANT REJECTION
     Dosage: SEE IMAGE
     Dates: start: 20031106, end: 20031110
  6. NEORAL [Suspect]
     Indication: PROPHYLAXIS AGAINST TRANSPLANT REJECTION
     Dosage: SEE IMAGE
     Dates: start: 20031111, end: 20031114
  7. NEORAL [Suspect]
     Indication: PROPHYLAXIS AGAINST TRANSPLANT REJECTION
     Dosage: SEE IMAGE
     Dates: start: 20031115
  8. PREDNISONE [Concomitant]
  9. BACTRIM [Concomitant]
  10. GANCICLOVIR SODIUM [Concomitant]
  11. ZAROXOLYN [Concomitant]
  12. NYSTAIN (NYSTATIN) [Concomitant]

REACTIONS (12)
  - COUGH [None]
  - EPSTEIN-BARR VIRUS INFECTION [None]
  - GASTRIC ULCER [None]
  - GASTRITIS HAEMORRHAGIC [None]
  - HAEMOLYTIC URAEMIC SYNDROME [None]
  - HYPOTENSION [None]
  - MARKEDLY REDUCED DIETARY INTAKE [None]
  - MEDIASTINAL HAEMATOMA [None]
  - RENAL FAILURE [None]
  - RETROPERITONEAL HAEMATOMA [None]
  - THROMBOCYTOPENIA [None]
  - VOCAL CORD PARALYSIS [None]
